FAERS Safety Report 7423240-6 (Version None)
Quarter: 2011Q2

REPORT INFORMATION
  Report Type: 
  Country: None (occurrence: None)
  Receive Date: 20110411
  Receipt Date: 20110330
  Transmission Date: 20111010
  Serious: Yes (Hospitalization)
  Sender: FDA-Public Use
  Company Number: HEXX-NO-1103S-0002

PATIENT
  Age: 65 Year
  Sex: Male
  Weight: 61.4 kg

DRUGS (6)
  1. ITOPRIDE (ITOPRIDE) [Concomitant]
  2. TERRAMYCIN V CAP [Concomitant]
  3. ACETAMINOPHEN [Concomitant]
  4. MAGNESIUM [Concomitant]
  5. HEXVIX (HEXAMINOLEVULINATE HYDROCHLORIDE) [Suspect]
     Indication: BLADDER CANCER
     Dosage: SINGLE DOSE
     Dates: start: 20100716, end: 20100716
  6. CIPROFLOXACIN [Concomitant]

REACTIONS (5)
  - BLOOD URINE PRESENT [None]
  - BLOOD PRESSURE DECREASED [None]
  - HEART RATE DECREASED [None]
  - POST PROCEDURAL COMPLICATION [None]
  - HAEMOGLOBIN DECREASED [None]
